FAERS Safety Report 5298974-2 (Version None)
Quarter: 2007Q2

REPORT INFORMATION
  Report Type: 
  Country: None (occurrence: None)
  Receive Date: 20070417
  Receipt Date: 20070403
  Transmission Date: 20071010
  Serious: Yes (Death, Hospitalization)
  Sender: FDA-Public Use
  Company Number: US-AMGEN-US215077

PATIENT
  Sex: Male
  Weight: 158 kg

DRUGS (12)
  1. VECTIBIX [Suspect]
     Indication: COLORECTAL CANCER
     Route: 042
     Dates: start: 20070111, end: 20070212
  2. LOTENSIN [Concomitant]
     Route: 065
  3. ZOLOFT [Concomitant]
     Route: 065
  4. PRILOSEC [Concomitant]
     Route: 065
  5. ATENOLOL [Concomitant]
     Route: 065
  6. IMODIUM [Concomitant]
     Route: 065
  7. ATIVAN [Concomitant]
     Route: 065
  8. COMPAZINE [Concomitant]
     Route: 065
  9. OXYCODONE HCL [Concomitant]
     Route: 065
  10. VITAMIN B6 [Concomitant]
     Route: 065
  11. NEXIUM [Concomitant]
     Route: 042
  12. CEPHALEXIN [Concomitant]
     Route: 065

REACTIONS (11)
  - BLOOD CREATINE PHOSPHOKINASE INCREASED [None]
  - DEHYDRATION [None]
  - DERMATITIS ACNEIFORM [None]
  - HYPERKALAEMIA [None]
  - HYPOMAGNESAEMIA [None]
  - HYPONATRAEMIA [None]
  - HYPOTENSION [None]
  - LIVER FUNCTION TEST ABNORMAL [None]
  - RENAL FAILURE ACUTE [None]
  - RHABDOMYOLYSIS [None]
  - SEPSIS [None]
